FAERS Safety Report 15835524 (Version 1)
Quarter: 2019Q1

REPORT INFORMATION
  Report Type: Spontaneous
  Country: TW (occurrence: TW)
  Receive Date: 20190117
  Receipt Date: 20190117
  Transmission Date: 20190417
  Serious: Yes (Other)
  Sender: FDA-Public Use
  Company Number: TW-STRIDES ARCOLAB LIMITED-2019SP000519

PATIENT
  Age: 33 Year
  Sex: Female

DRUGS (2)
  1. HYDROCORTISONE. [Concomitant]
     Active Substance: HYDROCORTISONE
     Indication: VASOGENIC CEREBRAL OEDEMA
     Dosage: UNK
     Route: 065
  2. TACROLIMUS. [Suspect]
     Active Substance: TACROLIMUS
     Indication: LIVER TRANSPLANT
     Dosage: UNK
     Route: 065

REACTIONS (10)
  - Seizure [Unknown]
  - Hepatic infarction [Unknown]
  - Thrombocytopenia [Unknown]
  - Overdose [Unknown]
  - Disease progression [Unknown]
  - Hepatic function abnormal [Unknown]
  - Loss of consciousness [Unknown]
  - Posterior reversible encephalopathy syndrome [Unknown]
  - Hyperbilirubinaemia [Unknown]
  - Toxicity to various agents [Unknown]
